FAERS Safety Report 26118159 (Version 1)
Quarter: 2025Q4

REPORT INFORMATION
  Report Type: Report from Study
  Country: US (occurrence: US)
  Receive Date: 20251203
  Receipt Date: 20251203
  Transmission Date: 20260117
  Serious: No
  Sender: MALLINCKRODT
  Company Number: US-MALLINCKRODT-MNK202507588

PATIENT
  Sex: Female

DRUGS (3)
  1. CORTICOTROPIN [Suspect]
     Active Substance: CORTICOTROPIN
     Indication: Product used for unknown indication
     Dosage: UNKNOWN
  2. PREDNISONE [Suspect]
     Active Substance: PREDNISONE
     Indication: Product used for unknown indication
     Dosage: UNKNOWN (HIGHER DOSE)
  3. PREDNISONE [Suspect]
     Active Substance: PREDNISONE

REACTIONS (13)
  - Restless legs syndrome [Unknown]
  - Blood iron decreased [Unknown]
  - Blood magnesium decreased [Unknown]
  - Joint swelling [Unknown]
  - Screaming [Recovering/Resolving]
  - Crying [Recovering/Resolving]
  - Mental disorder [Unknown]
  - Ill-defined disorder [Unknown]
  - Peripheral swelling [Unknown]
  - Insomnia [Unknown]
  - Weight increased [Unknown]
  - Fatigue [Not Recovered/Not Resolved]
  - Therapy non-responder [Unknown]
